FAERS Safety Report 7387680-6 (Version None)
Quarter: 2011Q1

REPORT INFORMATION
  Report Type: 
  Country: None (occurrence: None)
  Receive Date: 20110331
  Receipt Date: 20101020
  Transmission Date: 20110831
  Serious: Yes (Hospitalization, Other)
  Sender: FDA-Public Use
  Company Number: US-BAYER-200942888NA

PATIENT
  Sex: Female
  Weight: 84.545 kg

DRUGS (26)
  1. YASMIN [Suspect]
     Indication: PREMENSTRUAL SYNDROME
  2. DOXYCYCLINE [Concomitant]
     Dates: start: 20061201
  3. DOXYCYCLINE [Concomitant]
     Dates: start: 20070201
  4. YASMIN [Suspect]
     Indication: ACNE
     Dates: start: 20070601, end: 20071201
  5. DOXYCYCLINE [Concomitant]
     Dates: start: 20060801
  6. DOXYCYCLINE [Concomitant]
     Dates: start: 20060901
  7. DOXYCYCLINE [Concomitant]
     Dates: start: 20060701
  8. CLINDAMYCIN [Concomitant]
     Dates: start: 20070301
  9. AMNESTEEM [Concomitant]
     Indication: ACNE
  10. ZITHROMAX [Concomitant]
     Indication: CHRONIC SINUSITIS
     Dosage: UNK
     Route: 048
     Dates: start: 20071101
  11. YAZ [Suspect]
     Indication: ACNE
     Route: 048
     Dates: start: 20060601, end: 20061001
  12. PEPCID [Concomitant]
  13. YAZ [Suspect]
     Indication: PREMENSTRUAL SYNDROME
     Route: 048
     Dates: start: 20080201, end: 20080601
  14. DOXYCYCLINE [Concomitant]
     Dates: start: 20051201
  15. DOXYCYCLINE [Concomitant]
     Dates: start: 20070301
  16. CLINDAMYCIN [Concomitant]
     Dates: start: 20060301
  17. DOXYCYCLINE [Concomitant]
     Dates: start: 20060201
  18. DOXYCYCLINE [Concomitant]
     Dates: start: 20100101
  19. CLINDAMYCIN [Concomitant]
     Dates: start: 20060401
  20. CLINDAMYCIN [Concomitant]
     Dates: start: 20061201
  21. MINOCYCLINE [Concomitant]
     Dates: start: 20060101
  22. DIFFERIN [Concomitant]
     Dates: start: 20051201, end: 20060701
  23. MULTI-VITAMIN [Concomitant]
     Dosage: ONE TABLET DAILY
     Route: 048
  24. DOXYCYCLINE [Concomitant]
     Dates: start: 20091201
  25. ALEVE [Concomitant]
     Dosage: UNK UNK, PRN
     Dates: start: 19940101
  26. CLARITHROMYCIN [Concomitant]
     Indication: CHRONIC SINUSITIS
     Dosage: 500 MG, TID
     Route: 048
     Dates: start: 20071204, end: 20071210

REACTIONS (6)
  - VENTRICULAR TACHYCARDIA [None]
  - CHEST PAIN [None]
  - MOBILITY DECREASED [None]
  - DYSPNOEA [None]
  - MYOCARDIAL INFARCTION [None]
  - SYNCOPE [None]
